FAERS Safety Report 9189417 (Version 2)
Quarter: 2013Q1

REPORT INFORMATION
  Report Type: Spontaneous
  Country: US (occurrence: None)
  Receive Date: 20130322
  Receipt Date: 20130322
  Transmission Date: 20140127
  Serious: Yes (Hospitalization)
  Sender: FDA-Public Use
  Company Number: 2013P1003226

PATIENT
  Age: 74 Year
  Sex: Female
  Weight: 56.25 kg

DRUGS (6)
  1. OPIUM TINCTURE [Suspect]
     Route: 048
     Dates: start: 20130306
  2. LOMOTIL [Suspect]
     Dates: start: 20130308
  3. UNSPECIFIED BLOOD SUGAR MEDICATION [Concomitant]
  4. UNSPECIFIED  HIGH BLOOD PRESSURE MEDICATION [Concomitant]
  5. MAGNESIUM [Concomitant]
  6. POTASSIUM [Concomitant]

REACTIONS (4)
  - Drug effect decreased [None]
  - Diarrhoea [None]
  - Dehydration [None]
  - Blood creatinine abnormal [None]
